FAERS Safety Report 11131658 (Version 3)
Quarter: 2018Q4

REPORT INFORMATION
  Report Type: Report from Study
  Country: US (occurrence: US)
  Receive Date: 20150522
  Receipt Date: 20181126
  Transmission Date: 20190204
  Serious: Yes (Death, Other)
  Sender: FDA-Public Use
  Company Number: US-ROCHE-1578895

PATIENT

DRUGS (3)
  1. VEMURAFENIB. [Suspect]
     Active Substance: VEMURAFENIB
     Indication: NEOPLASM MALIGNANT
     Dosage: 480-720 MG
     Route: 065
  2. CARBOPLATIN. [Suspect]
     Active Substance: CARBOPLATIN
     Indication: NEOPLASM MALIGNANT
     Dosage: AUC 5-6
     Route: 065
  3. PACLITAXEL. [Suspect]
     Active Substance: PACLITAXEL
     Indication: NEOPLASM MALIGNANT
     Dosage: 100-135 MG/M2
     Route: 065

REACTIONS (21)
  - Thrombocytopenia [Unknown]
  - Anaemia [Unknown]
  - Vomiting [Unknown]
  - Leukopenia [Unknown]
  - Haemorrhage intracranial [Fatal]
  - Hypokalaemia [Unknown]
  - Hyponatraemia [Unknown]
  - Nausea [Unknown]
  - Bacteraemia [Unknown]
  - Dehydration [Unknown]
  - Transaminases increased [Unknown]
  - Febrile neutropenia [Unknown]
  - Decreased appetite [Unknown]
  - Mental status changes [Unknown]
  - Palmar-plantar erythrodysaesthesia syndrome [Unknown]
  - Neutropenia [Unknown]
  - Fatigue [Unknown]
  - Hypophosphataemia [Unknown]
  - Mucosal inflammation [Unknown]
  - Weight decreased [Unknown]
  - Squamous cell carcinoma of skin [Unknown]
